FAERS Safety Report 6453937-6 (Version None)
Quarter: 2009Q4

REPORT INFORMATION
  Report Type: 
  Country: None (occurrence: None)
  Receive Date: 20091124
  Receipt Date: 20090909
  Transmission Date: 20100525
  Serious: Yes (Other)
  Sender: FDA-Public Use
  Company Number: US-BAYER-200920273NA

PATIENT
  Age: 52 Year
  Sex: Female
  Weight: 79 kg

DRUGS (25)
  1. MAGNEVIST [Suspect]
     Indication: NUCLEAR MAGNETIC RESONANCE IMAGING BRAIN
     Dates: start: 20060807, end: 20060807
  2. MAGNEVIST [Suspect]
     Dates: start: 20060809, end: 20060809
  3. OMNISCAN [Suspect]
     Indication: NUCLEAR MAGNETIC RESONANCE IMAGING
     Dates: start: 20040506, end: 20040506
  4. OMNISCAN [Suspect]
     Dates: start: 20050405, end: 20050405
  5. OMNISCAN [Suspect]
     Dates: start: 20050907, end: 20050907
  6. OMNISCAN [Suspect]
     Dates: start: 20070125, end: 20070125
  7. UNSPECIFIED GBCA [Suspect]
     Indication: NUCLEAR MAGNETIC RESONANCE IMAGING BRAIN
     Dates: start: 20070124, end: 20070124
  8. PHOSLO [Concomitant]
  9. DESIPRAMINE [Concomitant]
  10. VYTORIN [Concomitant]
  11. SINGULAIR [Concomitant]
  12. COUMADIN [Concomitant]
  13. RISPERDAL [Concomitant]
  14. HYDRALAZINE HCL [Concomitant]
  15. CARTIA XT [Concomitant]
  16. RENAL SOFTGEL [Concomitant]
  17. ASPIRIN [Concomitant]
  18. COREG [Concomitant]
  19. HYDRAZINE SULPHATE [Concomitant]
  20. PLAVIX [Concomitant]
  21. IRON SUPPLEMENT [Concomitant]
     Route: 042
     Dates: start: 20031101
  22. EPOGEN [Concomitant]
  23. PROCRIT [Concomitant]
  24. EPOGEN [Concomitant]
  25. CALCIUM ACETATE [Concomitant]

REACTIONS (21)
  - DRY SKIN [None]
  - GAIT DISTURBANCE [None]
  - HAEMOSIDEROSIS [None]
  - HYPOAESTHESIA [None]
  - JOINT RANGE OF MOTION DECREASED [None]
  - JOINT STIFFNESS [None]
  - JOINT SWELLING [None]
  - LOCALISED OEDEMA [None]
  - MYALGIA [None]
  - NEPHROGENIC SYSTEMIC FIBROSIS [None]
  - OCULAR ICTERUS [None]
  - OEDEMA [None]
  - OEDEMA PERIPHERAL [None]
  - PAIN IN EXTREMITY [None]
  - PIGMENTATION DISORDER [None]
  - RASH [None]
  - SKIN DISCOLOURATION [None]
  - SKIN HYPERTROPHY [None]
  - SKIN INDURATION [None]
  - SKIN PLAQUE [None]
  - SKIN TIGHTNESS [None]
